FAERS Safety Report 6681127-0 (Version None)
Quarter: 2010Q2

REPORT INFORMATION
  Report Type: 
  Country: None (occurrence: None)
  Receive Date: 20100414
  Receipt Date: 20100402
  Transmission Date: 20101027
  Serious: Yes (Hospitalization, Disabling)
  Sender: FDA-Public Use
  Company Number: PL-ROCHE-695031

PATIENT
  Sex: Male
  Weight: 70 kg

DRUGS (5)
  1. METHOXY POLYETHYLENE GLYCOL-EPOETIN BETA [Suspect]
     Dosage: FORM: SYRINGE
     Route: 058
     Dates: end: 20100402
  2. DIUVER [Concomitant]
     Dates: start: 20100317
  3. ENARENAL [Concomitant]
     Dates: start: 20100302
  4. MIXTARD 30 HM [Concomitant]
     Dosage: TDD NOT VISIBLE
     Dates: start: 20091015
  5. ACTRAPID [Concomitant]
     Dosage: TDD: NOT VISIBLE
     Dates: start: 20091015

REACTIONS (1)
  - EXTREMITY NECROSIS [None]
